FAERS Safety Report 23652476 (Version 5)
Quarter: 2024Q2

REPORT INFORMATION
  Report Type: Spontaneous
  Country: US (occurrence: US)
  Receive Date: 20240320
  Receipt Date: 20240606
  Transmission Date: 20240716
  Serious: No
  Sender: FDA-Public Use
  Company Number: US-PFIZER INC-PV202400029142

PATIENT
  Age: 10 Year
  Sex: Male
  Weight: 27.211 kg

DRUGS (1)
  1. GENOTROPIN [Suspect]
     Active Substance: SOMATROPIN
     Indication: Growth disorder
     Dosage: 104 MG, 1X/DAY
     Dates: start: 2018

REACTIONS (1)
  - Device use issue [Unknown]
